FAERS Safety Report 5817092-5 (Version None)
Quarter: 2008Q3

REPORT INFORMATION
  Report Type: 
  Country: None (occurrence: None)
  Receive Date: 20080722
  Receipt Date: 20080716
  Transmission Date: 20090109
  Serious: Yes (Death)
  Sender: FDA-Public Use
  Company Number: GB-TEVA-174486ISR

PATIENT
  Age: 26 Year
  Sex: Female
  Weight: 68 kg

DRUGS (2)
  1. CARBAMAZEPINE [Suspect]
  2. INFLUENZA VIRUS [Suspect]

REACTIONS (2)
  - DEATH [None]
  - DRUG TOXICITY [None]
